FAERS Safety Report 11378877 (Version 1)
Quarter: 2015Q3

REPORT INFORMATION
  Report Type: Spontaneous
  Country: US (occurrence: US)
  Receive Date: 20150811
  Receipt Date: 20150811
  Transmission Date: 20151125
  Serious: No
  Sender: FDA-Public Use
  Company Number: US-ELI_LILLY_AND_COMPANY-US200710005653

PATIENT
  Age: 69 Year
  Sex: Male

DRUGS (3)
  1. CIALIS [Suspect]
     Active Substance: TADALAFIL
     Indication: ERECTILE DYSFUNCTION
     Dosage: 20 MG, UNK
     Route: 048
     Dates: start: 200704
  2. CIALIS [Suspect]
     Active Substance: TADALAFIL
     Dosage: 10 MG, DAILY (1/D)
     Route: 048
     Dates: start: 2007
  3. NEXIUM [Concomitant]
     Active Substance: ESOMEPRAZOLE MAGNESIUM
     Dosage: 40 MG, DAILY (1/D)

REACTIONS (6)
  - Dyspepsia [Recovered/Resolved]
  - Swelling face [Recovered/Resolved]
  - Gastritis [Recovered/Resolved]
  - Ocular hyperaemia [Recovered/Resolved]
  - Nausea [Recovered/Resolved]
  - Glossodynia [Recovered/Resolved]

NARRATIVE: CASE EVENT DATE: 20071018
